FAERS Safety Report 16376727 (Version 3)
Quarter: 2024Q4

REPORT INFORMATION
  Report Type: Spontaneous
  Country: US (occurrence: US)
  Receive Date: 20190531
  Receipt Date: 20241010
  Transmission Date: 20250115
  Serious: Yes (Life-Threatening, Hospitalization, Other)
  Sender: GLENMARK
  Company Number: US-GLENMARK PHARMACEUTICALS-2019GMK041445

PATIENT

DRUGS (8)
  1. MELOXICAM [Interacting]
     Active Substance: MELOXICAM
     Indication: Arthralgia
     Dosage: UNK
     Route: 065
  2. MELOXICAM [Interacting]
     Active Substance: MELOXICAM
     Dosage: 15 MG, OD (POST ADMISSION)
     Route: 048
  3. DESMOPRESSIN ACETATE [Interacting]
     Active Substance: DESMOPRESSIN ACETATE
     Indication: Urinary incontinence
     Dosage: 0.2 MG, OD (BY MOUTH EVERY BEDTIME)
     Route: 048
  4. LAMOTRIGINE [Concomitant]
     Active Substance: LAMOTRIGINE
     Indication: Affective disorder
     Dosage: 100 MG, BID (EVERY 12 HOURS)
     Route: 048
  5. CLOZAPINE [Concomitant]
     Active Substance: CLOZAPINE
     Indication: Schizophrenia
     Dosage: 225 MG, OD (225 MG BY MOUTH EVERY MORNING AND 400 MG BY MOUTH EVERY BEDTIME FOR A DECADE)
     Route: 048
  6. CLOZAPINE [Concomitant]
     Active Substance: CLOZAPINE
     Dosage: 400 MG, OD (225 MG BY MOUTH EVERY MORNING AND 400 MG BY MOUTH EVERY BEDTIME FOR A DECADE)
     Route: 048
  7. FLUOXETINE [Concomitant]
     Active Substance: FLUOXETINE HYDROCHLORIDE
     Indication: Affective disorder
     Dosage: 10 MILLIGRAM, OD
     Route: 048
  8. ACETAMINOPHEN [Concomitant]
     Active Substance: ACETAMINOPHEN
     Indication: Product used for unknown indication
     Dosage: UNK
     Route: 065

REACTIONS (6)
  - Drug interaction [Unknown]
  - Fluid retention [Unknown]
  - Generalised tonic-clonic seizure [Recovered/Resolved]
  - Hyponatraemia [Unknown]
  - Water intoxication [Unknown]
  - Product use in unapproved indication [Unknown]
